FAERS Safety Report 5149984-7 (Version None)
Quarter: 2006Q4

REPORT INFORMATION
  Report Type: 
  Country: None (occurrence: None)
  Receive Date: 20061108
  Receipt Date: 20061028
  Transmission Date: 20070319
  Serious: Yes (Other)
  Sender: FDA-Public Use
  Company Number: 2006132849

PATIENT
  Sex: 0

DRUGS (1)
  1. GEODON [Suspect]

REACTIONS (1)
  - PANCREATITIS [None]
